FAERS Safety Report 9072195 (Version 1)
Quarter: 2013Q1

REPORT INFORMATION
  Report Type: Report from Study
  Country: US (occurrence: US)
  Receive Date: 20130129
  Receipt Date: 20130129
  Transmission Date: 20140127
  Serious: No
  Sender: FDA-Public Use
  Company Number: US-ABBOTT-12P-163-0930058-00

PATIENT
  Age: 73 Year
  Sex: Female

DRUGS (9)
  1. HUMIRA 40 MG/0.8 ML PEN [Suspect]
     Indication: RHEUMATOID ARTHRITIS
     Dosage: FIRST DOSE ONLY
     Dates: start: 20120424
  2. LODIPINE [Concomitant]
     Indication: BLOOD PRESSURE
     Dosage: DAILY
  3. TOPROL [Concomitant]
     Indication: BLOOD PRESSURE
     Dosage: DAILY
  4. PRAVASTATIN [Concomitant]
     Indication: BLOOD CHOLESTEROL
     Dosage: DAILY
  5. HYDROCODONE [Concomitant]
     Indication: PAIN
  6. AMBIEN [Concomitant]
     Indication: INSOMNIA
     Dosage: AT BEDTIME
  7. CYMBALTA [Concomitant]
     Indication: DEPRESSION
     Dosage: DAILY
  8. SYMBICORT [Concomitant]
     Indication: ASTHMA
  9. XANAX [Concomitant]
     Indication: ANXIETY
     Dosage: 3 TIMES A DAY AS NEEDED

REACTIONS (3)
  - Diarrhoea [Recovered/Resolved]
  - Drug administration error [Unknown]
  - Incorrect dose administered [Unknown]
